FAERS Safety Report 9925808 (Version 2)
Quarter: 2014Q1

REPORT INFORMATION
  Report Type: Spontaneous
  Country: US (occurrence: US)
  Receive Date: 20140226
  Receipt Date: 20140312
  Transmission Date: 20141002
  Serious: No
  Sender: FDA-Public Use
  Company Number: US-009507513-1402USA010472

PATIENT
  Sex: Female

DRUGS (1)
  1. NEXPLANON [Suspect]
     Dosage: UNK
     Dates: start: 201401

REACTIONS (4)
  - Medical device complication [Unknown]
  - No adverse event [Unknown]
  - Product quality issue [Unknown]
  - Device dislocation [Unknown]
